FAERS Safety Report 24901036 (Version 1)
Quarter: 2025Q1

REPORT INFORMATION
  Report Type: Spontaneous
  Country: US (occurrence: US)
  Receive Date: 20250129
  Receipt Date: 20250129
  Transmission Date: 20250408
  Serious: Yes (Hospitalization)
  Sender: LEXICON PHARMACEUTICALS
  Company Number: US-LEX-000649

PATIENT
  Sex: Male
  Weight: 127.01 kg

DRUGS (1)
  1. INPEFA [Suspect]
     Active Substance: SOTAGLIFLOZIN
     Indication: Diabetes mellitus
     Dates: start: 202405

REACTIONS (2)
  - Cardiac disorder [Unknown]
  - Dyspnoea [Not Recovered/Not Resolved]
